FAERS Safety Report 6229441-7 (Version None)
Quarter: 2009Q2

REPORT INFORMATION
  Report Type: 
  Country: None (occurrence: None)
  Receive Date: 20090615
  Receipt Date: 20090608
  Transmission Date: 20091009
  Serious: Yes (Hospitalization)
  Sender: FDA-Public Use
  Company Number: A0731206A

PATIENT
  Age: 41 Year
  Sex: Male
  Weight: 165.5 kg

DRUGS (11)
  1. AVANDIA [Suspect]
     Indication: DIABETES MELLITUS
     Dosage: 8MG PER DAY
     Route: 048
     Dates: start: 20041122, end: 20070620
  2. METFORMIN HYDROCHLORIDE [Concomitant]
  3. LANTUS [Concomitant]
  4. GLYBURIDE [Concomitant]
  5. PREVACID [Concomitant]
  6. NIACIN [Concomitant]
  7. ASPIRIN [Concomitant]
  8. CRESTOR [Concomitant]
  9. NIASPAN [Concomitant]
  10. SPIRONOLACTONE [Concomitant]
  11. AVAPRO [Concomitant]

REACTIONS (3)
  - CEREBROVASCULAR ACCIDENT [None]
  - CONVULSION [None]
  - PARALYSIS [None]
